FAERS Safety Report 7237180-9 (Version None)
Quarter: 2011Q1

REPORT INFORMATION
  Report Type: 
  Country: None (occurrence: None)
  Receive Date: 20110121
  Receipt Date: 20101213
  Transmission Date: 20110831
  Serious: Yes (Other)
  Sender: FDA-Public Use
  Company Number: BR-BAYER-201021177LA

PATIENT
  Sex: Female
  Weight: 51 kg

DRUGS (1)
  1. MIRANOVA [Suspect]
     Indication: ORAL CONTRACEPTION
     Route: 048
     Dates: start: 20101102

REACTIONS (4)
  - NAUSEA [None]
  - METRORRHAGIA [None]
  - ANAL HAEMORRHAGE [None]
  - ANORECTAL DISORDER [None]
